FAERS Safety Report 25784901 (Version 3)
Quarter: 2025Q4

REPORT INFORMATION
  Report Type: Report from Study
  Country: US (occurrence: US)
  Receive Date: 20250910
  Receipt Date: 20251017
  Transmission Date: 20260118
  Serious: Yes (Hospitalization)
  Sender: TAKEDA
  Company Number: US-TAKEDA-2025TUS076209

PATIENT
  Age: 22 Year
  Sex: Female

DRUGS (3)
  1. PONATINIB [Suspect]
     Active Substance: PONATINIB
     Indication: Acute lymphocytic leukaemia
     Dosage: 30 MILLIGRAM, QD
     Dates: start: 20250818
  2. PONATINIB [Suspect]
     Active Substance: PONATINIB
     Dosage: 30 MILLIGRAM, QD
  3. BLINCYTO [Concomitant]
     Active Substance: BLINATUMOMAB
     Dosage: UNK

REACTIONS (10)
  - Sciatica [Unknown]
  - Back pain [Unknown]
  - Nervousness [Unknown]
  - Product dose omission issue [Unknown]
  - Blood glucose increased [Unknown]
  - Headache [Unknown]
  - Malaise [Unknown]
  - Abdominal pain upper [Unknown]
  - Fatigue [Unknown]
  - Constipation [Unknown]
